FAERS Safety Report 20591448 (Version 3)
Quarter: 2022Q2

REPORT INFORMATION
  Report Type: Report from Study
  Country: US (occurrence: US)
  Receive Date: 20220314
  Receipt Date: 20220628
  Transmission Date: 20220721
  Serious: Yes (Hospitalization)
  Sender: FDA-Public Use
  Company Number: US-TAKEDA-2022TUS015551

PATIENT
  Sex: Female

DRUGS (9)
  1. MARIBAVIR [Suspect]
     Active Substance: MARIBAVIR
     Indication: Cytomegalovirus infection
     Dosage: 400 MILLIGRAM, BID
     Route: 048
     Dates: start: 20220225
  2. MARIBAVIR [Suspect]
     Active Substance: MARIBAVIR
     Dosage: 400 MILLIGRAM, BID
     Route: 048
     Dates: start: 20220310
  3. SENSIPAR [Concomitant]
     Active Substance: CINACALCET HYDROCHLORIDE
     Dosage: 30 MILLIGRAM, QD
     Route: 065
     Dates: start: 20220310
  4. ASPIRIN [Concomitant]
     Active Substance: ASPIRIN
     Route: 065
  5. CRESTOR [Concomitant]
     Active Substance: ROSUVASTATIN CALCIUM
     Route: 065
  6. FISH OIL [Concomitant]
     Active Substance: FISH OIL
  7. SODIUM BICARBONATE [Concomitant]
     Active Substance: SODIUM BICARBONATE
     Route: 065
  8. VITAMIN D [Concomitant]
     Active Substance: VITAMIN D NOS
     Route: 065
  9. TACROLIMUS [Concomitant]
     Active Substance: TACROLIMUS
     Dosage: 5 MILLIGRAM, BID
     Route: 048

REACTIONS (11)
  - Cytomegalovirus test positive [Unknown]
  - Bartonella test positive [Unknown]
  - Infection [Unknown]
  - Nausea [Unknown]
  - Diarrhoea [Unknown]
  - Taste disorder [Unknown]
  - Photosensitivity reaction [Unknown]
  - Memory impairment [Unknown]
  - Blood creatine increased [Unknown]
  - Blood urea increased [Unknown]
  - Haemoglobin decreased [Unknown]
